FAERS Safety Report 18334681 (Version 4)
Quarter: 2020Q4

REPORT INFORMATION
  Report Type: Spontaneous
  Country: FR (occurrence: FR)
  Receive Date: 20201001
  Receipt Date: 20201201
  Transmission Date: 20210113
  Serious: Yes (Life-Threatening, Other)
  Sender: FDA-Public Use
  Company Number: FR-ASTELLAS-2020US034415

PATIENT
  Age: 85 Year
  Sex: Male

DRUGS (17)
  1. CORDARONE [Concomitant]
     Active Substance: AMIODARONE HYDROCHLORIDE
     Indication: PRODUCT USED FOR UNKNOWN INDICATION
     Dosage: UNK UNK, UNKNOWN FREQ.
     Route: 065
     Dates: start: 2013
  2. CORDARONE [Concomitant]
     Active Substance: AMIODARONE HYDROCHLORIDE
     Dosage: 1 DF, IN THE MORNING ON MONDAYS, WEDNESDAYS AND FRIDAYS
     Route: 048
     Dates: start: 20200905
  3. MESTINON [Concomitant]
     Active Substance: PYRIDOSTIGMINE BROMIDE
     Indication: STASIS SYNDROME
     Dosage: UNK UNK, UNKNOWN FREQ.
     Route: 065
  4. SERESTA [Concomitant]
     Active Substance: OXAZEPAM
     Indication: PRODUCT USED FOR UNKNOWN INDICATION
     Dosage: 1 DF MAXIMUM PER INTAKE 2 DF MAXIMUM DAILY, AS NEEDED
     Route: 048
     Dates: start: 20191229
  5. VENLAFAXINE [Concomitant]
     Active Substance: VENLAFAXINE HYDROCHLORIDE
     Indication: PRODUCT USED FOR UNKNOWN INDICATION
     Dosage: 1 DF, ONCE DAILY (IN THE MORNING)
     Route: 048
     Dates: start: 20200808
  6. DOLIPRANE [Concomitant]
     Active Substance: ACETAMINOPHEN
     Indication: PRODUCT USED FOR UNKNOWN INDICATION
     Dosage: 2 DF, TWICE DAILY (IN THE MORNING AND IN THE EVENING)
     Route: 048
     Dates: start: 20200918
  7. PREGABALINE [Concomitant]
     Active Substance: PREGABALIN
     Indication: PRODUCT USED FOR UNKNOWN INDICATION
     Dosage: 1 DF, TWICE DAILY (IN THE MORNING AND IN THE EVENING)
     Route: 048
     Dates: start: 20200923
  8. OXYGEN. [Concomitant]
     Active Substance: OXYGEN
     Indication: PRODUCT USED FOR UNKNOWN INDICATION
     Dosage: 3 L, EVERY 12 HOURS (FROM 7PM TO 7AM)
     Route: 045
     Dates: start: 20200923
  9. LYRICA [Concomitant]
     Active Substance: PREGABALIN
     Indication: PARAESTHESIA
     Dosage: UNK UNK, UNKNOWN FREQ.
     Route: 065
  10. ACTISKENAN [Concomitant]
     Active Substance: MORPHINE SULFATE
     Indication: PRODUCT USED FOR UNKNOWN INDICATION
     Dosage: 1 DF, TWICE DAILY (IN THE MORNING AND IN THE EVENING FOR 28 DAYS 30 MINUTES BEFORE CARE)
     Route: 048
     Dates: start: 20200923
  11. ELIQUIS [Concomitant]
     Active Substance: APIXABAN
     Indication: PRODUCT USED FOR UNKNOWN INDICATION
     Dosage: 1 DF, TWICE DAILY (IN THE MORNING AND IN THE EVENING)
     Route: 048
     Dates: start: 20200410
  12. MATRIFEN [Concomitant]
     Active Substance: FENTANYL
     Indication: PRODUCT USED FOR UNKNOWN INDICATION
     Dosage: 1 DF (12 MICROGRAM/HOUR), IN THE MORNING EVERY THREE DAYS FOR 28 DAYS
     Route: 062
     Dates: start: 20200924
  13. XTANDI [Suspect]
     Active Substance: ENZALUTAMIDE
     Indication: PROSTATE CANCER
     Dosage: 160 MG, ONCE DAILY (IN THE MORNING)
     Route: 048
     Dates: start: 20200512, end: 20200924
  14. TIAPRIDAL [Concomitant]
     Active Substance: TIAPRIDE HYDROCHLORIDE
     Indication: PERSECUTORY DELUSION
     Dosage: UNK UNK, UNKNOWN FREQ.
     Route: 065
  15. FUROSEMIDE. [Concomitant]
     Active Substance: FUROSEMIDE
     Indication: PRODUCT USED FOR UNKNOWN INDICATION
     Dosage: 1 DF, ONCE DAILY (IN THE MORNING)
     Route: 048
     Dates: start: 20200923
  16. SOLUPRED [PREDNISOLONE] [Concomitant]
     Active Substance: PREDNISOLONE
     Indication: PRODUCT USED FOR UNKNOWN INDICATION
     Dosage: 2 DF, ONCE DAILY (IN THE MORNING)
     Route: 048
     Dates: start: 20200923
  17. TERBUTALINE ARROW [Concomitant]
     Active Substance: TERBUTALINE
     Indication: PRODUCT USED FOR UNKNOWN INDICATION
     Dosage: 1 DOSE (5 MG/2ML) FOR 5 MINUTES AT 7AM, 12PM AND 7PM DAILY
     Route: 050
     Dates: start: 20200918

REACTIONS (2)
  - Pneumonia aspiration [Not Recovered/Not Resolved]
  - Respiratory tract infection [Not Recovered/Not Resolved]

NARRATIVE: CASE EVENT DATE: 20200911
